FAERS Safety Report 7457517-5 (Version None)
Quarter: 2011Q2

REPORT INFORMATION
  Report Type: 
  Country: None (occurrence: None)
  Receive Date: 20110504
  Receipt Date: 20110428
  Transmission Date: 20111010
  Serious: Yes (Life-Threatening, Hospitalization, Other)
  Sender: FDA-Public Use
  Company Number: US-BRISTOL-MYERS SQUIBB COMPANY-14262661

PATIENT
  Age: 77 Year
  Sex: Male
  Weight: 97 kg

DRUGS (13)
  1. LISINOPRIL [Concomitant]
  2. CATAPRES [Concomitant]
  3. ASPIRIN [Concomitant]
  4. NORVASC [Concomitant]
  5. CETUXIMAB [Suspect]
     Indication: NON-SMALL CELL LUNG CANCER METASTATIC
     Dosage: INTIAL DOSE 22MAY08. REC + LAST INF 12JUN08, 535MG1 IN 1 WK INTER 23JUN08 DISCONT:29JUN08
     Route: 042
     Dates: start: 20080522, end: 20080629
  6. COZAAR [Concomitant]
     Dosage: AT BEDTIME
  7. PRILOSEC [Concomitant]
  8. LOPRESSOR [Concomitant]
  9. LASIX [Concomitant]
  10. FOLATE [Concomitant]
  11. ALIMTA [Suspect]
     Indication: NON-SMALL CELL LUNG CANCER METASTATIC
     Dosage: INTIAL DOSE 22MAY08,12JUN08, 535 MG, 1 IN 3 WEEK. INTERRUPTED 23-JUN-08,RESTARTED ON 10JUL08
     Route: 042
     Dates: start: 20080522, end: 20080710
  12. CALCITRIOL [Concomitant]
  13. ACYCLOVIR [Concomitant]

REACTIONS (8)
  - RENAL FAILURE [None]
  - PULMONARY FIBROSIS [None]
  - HAEMOGLOBIN DECREASED [None]
  - PANCYTOPENIA [None]
  - CELLULITIS [None]
  - GASTROINTESTINAL HAEMORRHAGE [None]
  - HYPOXIA [None]
  - TACHYCARDIA [None]
